FAERS Safety Report 9412310 (Version 3)
Quarter: 2013Q3

REPORT INFORMATION
  Report Type: Spontaneous
  Country: DE (occurrence: DE)
  Receive Date: 20130722
  Receipt Date: 20130813
  Transmission Date: 20140515
  Serious: Yes (Other)
  Sender: FDA-Public Use
  Company Number: PHHY2013DE077299

PATIENT
  Age: 72 Year
  Sex: Female
  Weight: 64 kg

DRUGS (4)
  1. FEMARA [Suspect]
     Indication: BREAST CANCER
     Dosage: 2.5 MG, DAILY
     Route: 048
     Dates: start: 201008, end: 201207
  2. FEMARA [Suspect]
     Dosage: 2.5 MG, DAILY
     Route: 048
     Dates: start: 201210, end: 201307
  3. TAMOXIFEN [Suspect]
     Dosage: 20 MG, DAIILY
     Route: 048
     Dates: start: 2012
  4. BUDENOFALK [Concomitant]
     Indication: COLITIS MICROSCOPIC
     Dosage: 9 MG, DAILY
     Route: 048
     Dates: start: 201202

REACTIONS (2)
  - Colitis microscopic [Not Recovered/Not Resolved]
  - Diarrhoea [Not Recovered/Not Resolved]
